FAERS Safety Report 9358057 (Version 3)
Quarter: 2013Q3

REPORT INFORMATION
  Report Type: Report from Study
  Country: US (occurrence: US)
  Receive Date: 20130620
  Receipt Date: 20130916
  Transmission Date: 20140515
  Serious: Yes (Other)
  Sender: FDA-Public Use
  Company Number: US-009507513-1306USA005303

PATIENT
  Age: 59 Year
  Sex: Male
  Weight: 85.26 kg

DRUGS (8)
  1. SIMVASTATIN [Suspect]
     Indication: ACUTE CORONARY SYNDROME
     Dosage: 40 MG, QD
     Route: 048
     Dates: start: 20070312
  2. METOPROLOL [Concomitant]
     Dosage: 50 MG, BID
     Route: 048
     Dates: start: 20070508
  3. COMBIVENT [Concomitant]
     Dosage: 2 PUFF, PRN, INHALER
     Dates: start: 20120301
  4. ASPIRIN [Concomitant]
     Dosage: 325 MG, QD
     Route: 048
     Dates: start: 20070508
  5. SYMBICORT [Concomitant]
     Dosage: 2 PUFF, BID INHALER
     Route: 055
     Dates: start: 20120301
  6. NORVASC [Concomitant]
     Dosage: 10 MG, QD
     Route: 048
     Dates: start: 20130521, end: 20130611
  7. IMDUR [Concomitant]
     Dosage: 60 MG, QD
     Route: 048
     Dates: start: 20080715
  8. NEXIUM [Concomitant]
     Dosage: 40 MG, QD
     Route: 048
     Dates: start: 20080715

REACTIONS (1)
  - Pain in extremity [Recovered/Resolved]
